FAERS Safety Report 9114771 (Version 1)
Quarter: 2013Q1

REPORT INFORMATION
  Report Type: Spontaneous
  Country: US (occurrence: None)
  Receive Date: 20130220
  Receipt Date: 20130220
  Transmission Date: 20140127
  Serious: No
  Sender: FDA-Public Use
  Company Number: None

PATIENT
  Sex: Male
  Weight: 17.3 kg

DRUGS (2)
  1. TOPIRAMATE [Suspect]
     Indication: ANGELMAN^S SYNDROME
     Dosage: 9ML   P.O   BID?4/7/11  -  PRESENT
     Route: 048
     Dates: start: 20110407
  2. TOPIRAMATE [Suspect]
     Indication: EPILEPSY
     Dosage: 9ML   P.O   BID?4/7/11  -  PRESENT
     Route: 048
     Dates: start: 20110407

REACTIONS (1)
  - Convulsion [None]
